FAERS Safety Report 22530532 (Version 1)
Quarter: 2023Q2

REPORT INFORMATION
  Report Type: Report from Study
  Country: IN (occurrence: IN)
  Receive Date: 20230607
  Receipt Date: 20230607
  Transmission Date: 20230721
  Serious: Yes (Death)
  Sender: FDA-Public Use
  Company Number: IN-002147023-NVSC2023IN128167

PATIENT
  Age: 51 Year
  Sex: Male

DRUGS (1)
  1. CERTICAN [Suspect]
     Active Substance: EVEROLIMUS
     Indication: Liver transplant
     Dosage: 1 MG, BID
     Route: 048
     Dates: start: 20230413

REACTIONS (1)
  - Death [Fatal]

NARRATIVE: CASE EVENT DATE: 20230526
